FAERS Safety Report 18192290 (Version 2)
Quarter: 2020Q3

REPORT INFORMATION
  Report Type: Spontaneous
  Country: GB (occurrence: GB)
  Receive Date: 20200825
  Receipt Date: 20200904
  Transmission Date: 20201103
  Serious: Yes (Other)
  Sender: FDA-Public Use
  Company Number: GB-BAYER-2020-172028

PATIENT
  Age: 35 Year
  Sex: Female

DRUGS (2)
  1. PROGESTERONE. [Concomitant]
     Active Substance: PROGESTERONE
     Dosage: UNK
     Route: 048
  2. MIRENA [Suspect]
     Active Substance: LEVONORGESTREL
     Dosage: 20 ?G PER DAY CONTINUOUSLY
     Route: 015

REACTIONS (11)
  - Cervical cyst [None]
  - Abdominal pain lower [Not Recovered/Not Resolved]
  - Amenorrhoea [Not Recovered/Not Resolved]
  - Ectropion of cervix [None]
  - Endometrial atrophy [None]
  - Vaginal discharge [None]
  - Device difficult to use [None]
  - Vulvovaginal pain [Not Recovered/Not Resolved]
  - Embedded device [Not Recovered/Not Resolved]
  - Complication of device removal [None]
  - Device breakage [None]

NARRATIVE: CASE EVENT DATE: 2019
